FAERS Safety Report 19092080 (Version 1)
Quarter: 2021Q2

REPORT INFORMATION
  Report Type: Spontaneous
  Country: US (occurrence: US)
  Receive Date: 20210403
  Receipt Date: 20210403
  Transmission Date: 20210717
  Serious: Yes (Disabling)
  Sender: FDA-Public Use
  Company Number: None

PATIENT
  Age: 7 Year
  Sex: Female
  Weight: 27 kg

DRUGS (3)
  1. LITE^N FOAMY LIQUID HAND SOAP CITRUS FRESH [Suspect]
     Active Substance: SODIUM LAURYL SULFATE
     Indication: INFECTION PROPHYLAXIS
     Route: 061
  2. CORTISONE CREAM [Concomitant]
     Active Substance: HYDROCORTISONE
  3. LUBRIDERM FRAGRANCE FREE LOTION [Concomitant]

REACTIONS (1)
  - Eczema [None]

NARRATIVE: CASE EVENT DATE: 20210322
